FAERS Safety Report 25030361 (Version 2)
Quarter: 2025Q1

REPORT INFORMATION
  Report Type: Report from Study
  Country: CA (occurrence: CA)
  Receive Date: 20250303
  Receipt Date: 20250312
  Transmission Date: 20250408
  Serious: Yes (Death)
  Sender: APOTEX
  Company Number: CA-APOTEX-2025AP002543

PATIENT
  Age: 96 Year
  Sex: Female

DRUGS (1)
  1. POMALIDOMIDE [Suspect]
     Active Substance: POMALIDOMIDE
     Indication: Plasma cell myeloma
     Dosage: 1 DOSAGE FORM, QD FOR 28 DAYS
     Route: 048
     Dates: start: 20250208, end: 20250220

REACTIONS (2)
  - Illness [Fatal]
  - Off label use [Unknown]

NARRATIVE: CASE EVENT DATE: 20250128
